FAERS Safety Report 13562567 (Version 1)
Quarter: 2017Q2

REPORT INFORMATION
  Report Type: Report from Study
  Country: US (occurrence: US)
  Receive Date: 20170519
  Receipt Date: 20170519
  Transmission Date: 20170830
  Serious: No
  Sender: FDA-Public Use
  Company Number: US-AMGEN-USASL2017072688

PATIENT
  Age: 58 Year
  Sex: Female

DRUGS (1)
  1. ENBREL [Suspect]
     Active Substance: ETANERCEPT
     Indication: RHEUMATOID ARTHRITIS
     Dosage: 50 MG, QWK
     Route: 065

REACTIONS (8)
  - Chest pain [Unknown]
  - Dysgeusia [Unknown]
  - Throat irritation [Unknown]
  - Hypersensitivity [Unknown]
  - Cough [Unknown]
  - Swollen tongue [Unknown]
  - Weight decreased [Unknown]
  - Candida infection [Unknown]
